FAERS Safety Report 8890238 (Version 2)
Quarter: 2012Q4

REPORT INFORMATION
  Report Type: Report from Study
  Country: NL (occurrence: NL)
  Receive Date: 20121107
  Receipt Date: 20121113
  Transmission Date: 20130627
  Serious: Yes (Hospitalization)
  Sender: FDA-Public Use
  Company Number: NL-JNJFOC-20121101819

PATIENT
  Age: 17 Year
  Sex: Female
  Weight: 61 kg

DRUGS (2)
  1. REMICADE [Suspect]
     Indication: CROHN^S DISEASE
     Route: 042
     Dates: start: 20101105
  2. AZATHIOPRINE [Concomitant]

REACTIONS (1)
  - Intestinal stenosis [Recovered/Resolved]
